FAERS Safety Report 18451617 (Version 1)
Quarter: 2020Q4

REPORT INFORMATION
  Report Type: Spontaneous
  Country: GB (occurrence: GB)
  Receive Date: 20201102
  Receipt Date: 20201102
  Transmission Date: 20210114
  Serious: Yes (Hospitalization, Disabling, Other)
  Sender: FDA-Public Use
  Company Number: GB-ACCORD-207141

PATIENT
  Age: 20 Year
  Sex: Female
  Weight: 50 kg

DRUGS (2)
  1. FLUOXETINE [Suspect]
     Active Substance: FLUOXETINE HYDROCHLORIDE
     Indication: ANXIETY
     Route: 048
     Dates: start: 20180101
  2. IVABRADINE/IVABRADINE HYDROCHLORIDE [Concomitant]
     Active Substance: IVABRADINE HYDROCHLORIDE

REACTIONS (5)
  - Dyskinesia [Unknown]
  - Periodic limb movement disorder [Unknown]
  - Poor quality sleep [Recovering/Resolving]
  - Restlessness [Unknown]
  - Somnolence [Unknown]

NARRATIVE: CASE EVENT DATE: 20180101
